FAERS Safety Report 13146811 (Version 1)
Quarter: 2017Q1

REPORT INFORMATION
  Report Type: Spontaneous
  Country: US (occurrence: US)
  Receive Date: 20170125
  Receipt Date: 20170125
  Transmission Date: 20170428
  Serious: Yes (Other)
  Sender: FDA-Public Use
  Company Number: US-AMGEN-USASP2017010665

PATIENT
  Age: 73 Year
  Sex: Male

DRUGS (2)
  1. DEXAMETHASONE. [Concomitant]
     Active Substance: DEXAMETHASONE
     Indication: PLASMA CELL MYELOMA
     Dosage: UNK
     Dates: start: 201605
  2. KYPROLIS [Suspect]
     Active Substance: CARFILZOMIB
     Indication: PLASMA CELL MYELOMA
     Dosage: UNK
     Route: 065
     Dates: start: 201605

REACTIONS (5)
  - Hypertension [Recovering/Resolving]
  - Oedema peripheral [Recovering/Resolving]
  - Pulmonary oedema [Recovering/Resolving]
  - Pleural effusion [Recovering/Resolving]
  - Diastolic dysfunction [Recovering/Resolving]

NARRATIVE: CASE EVENT DATE: 201701
